FAERS Safety Report 5208406-8 (Version None)
Quarter: 2007Q1

REPORT INFORMATION
  Report Type: 
  Country: None (occurrence: None)
  Receive Date: 20070115
  Receipt Date: 20070111
  Transmission Date: 20070707
  Serious: Yes (Life-Threatening, Hospitalization)
  Sender: FDA-Public Use
  Company Number: CN-SHR-CN-2007-000983

PATIENT
  Age: 38 Year
  Sex: Female
  Weight: 32 kg

DRUGS (2)
  1. ULTRAVIST 300 [Suspect]
     Dosage: 100 ML, 1 DOSE
     Route: 040
     Dates: start: 20070105, end: 20070105
  2. ANTINEOPLASTIC AGENTS [Concomitant]

REACTIONS (5)
  - ANAPHYLACTIC SHOCK [None]
  - DYSPNOEA [None]
  - HEART RATE INCREASED [None]
  - LARYNGEAL OEDEMA [None]
  - RESTLESSNESS [None]
